FAERS Safety Report 10693576 (Version 5)
Quarter: 2015Q3

REPORT INFORMATION
  Report Type: Report from Study
  Country: US (occurrence: US)
  Receive Date: 20150106
  Receipt Date: 20150713
  Transmission Date: 20151125
  Serious: Yes (Hospitalization, Other)
  Sender: FDA-Public Use
  Company Number: US-SA-2014SA062277

PATIENT
  Age: 45 Year
  Sex: Female
  Weight: 45.36 kg

DRUGS (3)
  1. AUBAGIO [Suspect]
     Active Substance: TERIFLUNOMIDE
     Indication: MULTIPLE SCLEROSIS
     Route: 048
     Dates: start: 20140401, end: 20140629
  2. AUBAGIO [Suspect]
     Active Substance: TERIFLUNOMIDE
     Indication: MULTIPLE SCLEROSIS
     Route: 048
     Dates: start: 20140630, end: 20150520
  3. ACTHAR [Concomitant]
     Active Substance: CORTICOTROPIN
     Dates: start: 20141112

REACTIONS (21)
  - Gait disturbance [Unknown]
  - Activities of daily living impaired [Unknown]
  - Abdominal discomfort [Recovered/Resolved]
  - Fall [Unknown]
  - Unevaluable event [Unknown]
  - Bipolar I disorder [Unknown]
  - Headache [Recovered/Resolved]
  - Abdominal pain upper [Recovered/Resolved]
  - Vertigo positional [Unknown]
  - Hypoaesthesia [Unknown]
  - Eating disorder [Unknown]
  - Diarrhoea [Recovered/Resolved]
  - Drug dose omission [Unknown]
  - Multiple sclerosis relapse [Unknown]
  - Dyspepsia [Unknown]
  - Impaired driving ability [Unknown]
  - Hormone level abnormal [Unknown]
  - Abdominal distension [Unknown]
  - Asthenia [Not Recovered/Not Resolved]
  - Malaise [Unknown]
  - Vomiting [Unknown]

NARRATIVE: CASE EVENT DATE: 2014
